FAERS Safety Report 7382792-5 (Version None)
Quarter: 2011Q1

REPORT INFORMATION
  Report Type: 
  Country: None (occurrence: None)
  Receive Date: 20110330
  Receipt Date: 20110318
  Transmission Date: 20110831
  Serious: No
  Sender: FDA-Public Use
  Company Number: US-BIOGENIDEC-2011BI010323

PATIENT
  Sex: Male

DRUGS (2)
  1. AVONEX [Suspect]
     Route: 030
     Dates: start: 20010206, end: 20061204
  2. AVONEX [Suspect]
     Indication: MULTIPLE SCLEROSIS
     Route: 030
     Dates: start: 20100910

REACTIONS (1)
  - HYPOTONIA [None]
